FAERS Safety Report 24412922 (Version 1)
Quarter: 2024Q4

REPORT INFORMATION
  Report Type: Spontaneous
  Country: IT (occurrence: IT)
  Receive Date: 20241008
  Receipt Date: 20241008
  Transmission Date: 20250114
  Serious: Yes (Other)
  Sender: NOVARTIS
  Company Number: None

PATIENT
  Age: 36 Year
  Sex: Male

DRUGS (1)
  1. TEGRETOL [Suspect]
     Active Substance: CARBAMAZEPINE
     Indication: Mania
     Dosage: 200 MG, FILM COATED TABLET
     Route: 048
     Dates: start: 20240821, end: 20240821

REACTIONS (1)
  - Poisoning [Recovered/Resolved]

NARRATIVE: CASE EVENT DATE: 20240821
